FAERS Safety Report 10351362 (Version 2)
Quarter: 2014Q3

REPORT INFORMATION
  Report Type: Report from Study
  Country: FR (occurrence: FR)
  Receive Date: 20140730
  Receipt Date: 20140827
  Transmission Date: 20150326
  Serious: Yes (Death)
  Sender: FDA-Public Use
  Company Number: FR-PFIZER INC-2014208097

PATIENT
  Sex: Female
  Weight: 46 kg

DRUGS (2)
  1. SUNITINIB MALATE [Suspect]
     Active Substance: SUNITINIB MALATE
     Indication: RENAL CANCER METASTATIC
     Dosage: 50 MG 4 WEEKS ON / 2 WEEKS OFF
     Dates: start: 20100917, end: 20120510
  2. SUNITINIB MALATE [Suspect]
     Active Substance: SUNITINIB MALATE
     Dosage: 50 MG 4 WEEKS ON / 2 WEEKS OFF
     Dates: start: 20120801, end: 20120905

REACTIONS (2)
  - Disease progression [Fatal]
  - Renal cancer metastatic [Fatal]
